FAERS Safety Report 4842322-6 (Version None)
Quarter: 2005Q4

REPORT INFORMATION
  Report Type: 
  Country: None (occurrence: None)
  Receive Date: 20051129
  Receipt Date: 20051114
  Transmission Date: 20060501
  Serious: Yes (Hospitalization)
  Sender: FDA-Public Use
  Company Number: 2005US002723

PATIENT
  Age: 65 Year
  Sex: Female
  Weight: 72.3 kg

DRUGS (4)
  1. ALOXI [Suspect]
     Indication: PROPHYLAXIS OF NAUSEA AND VOMITING
     Dosage: 0.25 MG, SINGLE, IV BOLUS
     Route: 040
     Dates: start: 20051109, end: 20051109
  2. DOXORUBICIN HCL [Suspect]
     Indication: BREAST CANCER
     Dosage: 100 MG, SINGLE, IV BOLUS
     Route: 040
     Dates: start: 20051109, end: 20051109
  3. CYTOXAN [Suspect]
     Indication: BREAST CANCER
     Dosage: 1000 MG, SINGLE, IV BOLUS
     Route: 040
     Dates: start: 20051109, end: 20051109
  4. FLAGYL [Concomitant]

REACTIONS (6)
  - ATRIAL FIBRILLATION [None]
  - CONDITION AGGRAVATED [None]
  - DEHYDRATION [None]
  - POST PROCEDURAL NAUSEA [None]
  - POST PROCEDURAL VOMITING [None]
  - TACHYCARDIA [None]
